FAERS Safety Report 22047023 (Version 1)
Quarter: 2023Q1

REPORT INFORMATION
  Report Type: Spontaneous
  Country: US (occurrence: US)
  Receive Date: 20230301
  Receipt Date: 20230301
  Transmission Date: 20230418
  Serious: Yes (Death, Other)
  Sender: FDA-Public Use
  Company Number: US-AMGEN-USASP2023032966

PATIENT

DRUGS (1)
  1. FILGRASTIM [Suspect]
     Active Substance: FILGRASTIM
     Indication: Prophylaxis
     Dosage: UNK
     Route: 065

REACTIONS (17)
  - Death [Fatal]
  - Chronic graft versus host disease [Unknown]
  - Mycobacterium avium complex infection [Unknown]
  - Central nervous system infection [Unknown]
  - Neutropenia [Unknown]
  - Infection [Unknown]
  - Bacterial infection [Unknown]
  - Viral infection [Unknown]
  - Fungal infection [Unknown]
  - Haematological infection [Unknown]
  - Upper respiratory tract infection [Unknown]
  - Lower respiratory tract infection [Unknown]
  - Gastrointestinal infection [Unknown]
  - Skin infection [Unknown]
  - Soft tissue infection [Unknown]
  - Urinary tract infection [Unknown]
  - Pyrexia [Unknown]
